FAERS Safety Report 7772508-2 (Version None)
Quarter: 2011Q3

REPORT INFORMATION
  Report Type: 
  Country: None (occurrence: None)
  Receive Date: 20110922
  Receipt Date: 20110506
  Transmission Date: 20111222
  Serious: No
  Sender: FDA-Public Use
  Company Number: US-ASTRAZENECA-2011SE27295

PATIENT
  Age: 48 Year
  Sex: Male
  Weight: 81.6 kg

DRUGS (4)
  1. SEROQUEL [Suspect]
     Route: 048
     Dates: end: 20110503
  2. LITHIUM [Concomitant]
  3. SEROQUEL [Suspect]
     Indication: BIPOLAR DISORDER
     Route: 048
     Dates: start: 20100101
  4. WELLBUTRIN [Concomitant]

REACTIONS (3)
  - DRUG DOSE OMISSION [None]
  - INSOMNIA [None]
  - ABNORMAL DREAMS [None]
